FAERS Safety Report 9218070 (Version 1)
Quarter: 2013Q2

REPORT INFORMATION
  Report Type: Spontaneous
  Country: US (occurrence: US)
  Receive Date: 20130408
  Receipt Date: 20130408
  Transmission Date: 20140414
  Serious: Yes (Hospitalization)
  Sender: FDA-Public Use
  Company Number: US-GLAXOSMITHKLINE-A1018070A

PATIENT
  Age: 62 Year
  Sex: Male

DRUGS (2)
  1. ADVAIR [Suspect]
     Indication: ASTHMA
     Dosage: 1PUFF AS REQUIRED
     Route: 055
     Dates: start: 201301
  2. NO CONCURRENT MEDICATION [Concomitant]

REACTIONS (2)
  - Accidental overdose [Recovered/Resolved]
  - Drug administration error [Unknown]
